FAERS Safety Report 18017647 (Version 2)
Quarter: 2021Q3

REPORT INFORMATION
  Report Type: Spontaneous
  Country: US (occurrence: US)
  Receive Date: 20200713
  Receipt Date: 20210809
  Transmission Date: 20211014
  Serious: Yes (Other)
  Sender: FDA-Public Use
  Company Number: US-BAYER-2020-131898

PATIENT
  Age: 51 Year
  Sex: Male

DRUGS (2)
  1. MIFEPRISTONE [Concomitant]
     Active Substance: MIFEPRISTONE
     Indication: OSTEOSARCOMA METASTATIC
  2. REGORAFENIB. [Suspect]
     Active Substance: REGORAFENIB
     Indication: OSTEOSARCOMA METASTATIC
     Dosage: UNK

REACTIONS (10)
  - Metastases to abdominal cavity [None]
  - Metastasis [None]
  - Metastases to pelvis [None]
  - Somnolence [None]
  - Metastases to lung [Not Recovered/Not Resolved]
  - Pain in extremity [None]
  - Osteosarcoma metastatic [None]
  - General physical health deterioration [None]
  - Neuropathy peripheral [None]
  - Off label use [None]
